FAERS Safety Report 5407990-9 (Version None)
Quarter: 2007Q3

REPORT INFORMATION
  Report Type: 
  Country: None (occurrence: None)
  Receive Date: 20070803
  Receipt Date: 20070730
  Transmission Date: 20080115
  Serious: Yes (Hospitalization)
  Sender: FDA-Public Use
  Company Number: GRT 2007-12926

PATIENT
  Age: 35 Year
  Sex: Female
  Weight: 55 kg

DRUGS (4)
  1. LIDOCAINE [Suspect]
     Indication: NEURALGIA
     Dates: start: 20070710
  2. PREGABALIN [Suspect]
     Dosage: 2/DAY
     Dates: start: 20070710
  3. NOVORAPID [Concomitant]
  4. LEVEMIR [Concomitant]

REACTIONS (2)
  - BORRELIA BURGDORFERI SEROLOGY POSITIVE [None]
  - CHOLANGITIS [None]
